FAERS Safety Report 21591535 (Version 1)
Quarter: 2022Q4

REPORT INFORMATION
  Report Type: Spontaneous
  Country: ES (occurrence: ES)
  Receive Date: 20221114
  Receipt Date: 20221114
  Transmission Date: 20230112
  Serious: Yes (Death, Hospitalization, Other)
  Sender: FDA-Public Use
  Company Number: None

PATIENT
  Age: 72 Year
  Sex: Female

DRUGS (2)
  1. OPDIVO [Suspect]
     Active Substance: NIVOLUMAB
     Indication: Choroid melanoma
     Dosage: 3 CICLO EL 04/08/2022
     Route: 065
     Dates: start: 202206, end: 20220804
  2. YERVOY [Suspect]
     Active Substance: IPILIMUMAB
     Indication: Choroid melanoma
     Dosage: 3? CICLO EL 04/08/2022
     Route: 065
     Dates: start: 202206, end: 20220804

REACTIONS (4)
  - Hyponatraemia [Fatal]
  - Haematemesis [Fatal]
  - Immune-mediated enterocolitis [Fatal]
  - Epstein-Barr virus infection [Fatal]

NARRATIVE: CASE EVENT DATE: 20220815
